FAERS Safety Report 4995000-7 (Version None)
Quarter: 2006Q2

REPORT INFORMATION
  Report Type: 
  Country: None (occurrence: None)
  Receive Date: 20060503
  Receipt Date: 20060410
  Transmission Date: 20061013
  Serious: Yes (Hospitalization, Disabling)
  Sender: FDA-Public Use
  Company Number: 416085

PATIENT
  Age: 17 Year
  Sex: Female
  Weight: 72.6 kg

DRUGS (1)
  1. ACCUTANE [Suspect]
     Indication: ACNE
     Dosage: ORAL
     Route: 048
     Dates: start: 19941004, end: 19941107

REACTIONS (75)
  - AFFECTIVE DISORDER [None]
  - ALCOHOL USE [None]
  - ALLERGY TO PLANTS [None]
  - ANAEMIA [None]
  - ANAL FISSURE [None]
  - ASTHENIA [None]
  - BACK INJURY [None]
  - BILIARY DYSKINESIA [None]
  - BIPOLAR DISORDER [None]
  - BLOOD CHOLESTEROL INCREASED [None]
  - CHOLECYSTITIS [None]
  - CLAUSTROPHOBIA [None]
  - COLITIS ISCHAEMIC [None]
  - COLITIS PSEUDOMEMBRANOUS [None]
  - COLITIS ULCERATIVE [None]
  - CONSTIPATION [None]
  - CONTRAST MEDIA REACTION [None]
  - CROHN'S DISEASE [None]
  - DERMOID CYST [None]
  - DIZZINESS [None]
  - DRUG EXPOSURE DURING PREGNANCY [None]
  - DRUG HYPERSENSITIVITY [None]
  - EJECTION FRACTION DECREASED [None]
  - EMOTIONAL DISORDER [None]
  - ENDOMETRIOSIS [None]
  - EPISTAXIS [None]
  - FAECAL VOLUME INCREASED [None]
  - FAECES DISCOLOURED [None]
  - FEMALE SEXUAL AROUSAL DISORDER [None]
  - GALLBLADDER DISORDER [None]
  - GASTRIC ULCER [None]
  - GASTRITIS [None]
  - GASTROINTESTINAL DISORDER [None]
  - GASTROOESOPHAGEAL REFLUX DISEASE [None]
  - GENERALISED ANXIETY DISORDER [None]
  - HAEMORRHAGE [None]
  - HAEMORRHOIDS [None]
  - HEADACHE [None]
  - HORMONE LEVEL ABNORMAL [None]
  - HYPOGLYCAEMIA [None]
  - ILL-DEFINED DISORDER [None]
  - INFLAMMATION [None]
  - INFLAMMATORY BOWEL DISEASE [None]
  - INFLUENZA [None]
  - INTESTINAL HAEMORRHAGE [None]
  - IRRITABLE BOWEL SYNDROME [None]
  - LYMPHOID TISSUE HYPERPLASIA [None]
  - MIGRAINE [None]
  - MOOD SWINGS [None]
  - MULTI-ORGAN DISORDER [None]
  - MUSCLE SPASMS [None]
  - NAUSEA [None]
  - NEOPLASM [None]
  - OVARIAN CYST [None]
  - PANIC ATTACK [None]
  - PHOTOPHOBIA [None]
  - PREGNANCY [None]
  - PREMENSTRUAL SYNDROME [None]
  - PROCEDURAL PAIN [None]
  - PROCTITIS [None]
  - PROCTITIS ULCERATIVE [None]
  - RASH [None]
  - RECTAL HAEMORRHAGE [None]
  - SEXUAL ASSAULT VICTIM [None]
  - SINUSITIS [None]
  - SKIN LESION [None]
  - SOCIAL AVOIDANT BEHAVIOUR [None]
  - SUICIDAL IDEATION [None]
  - TENSION HEADACHE [None]
  - TONSILLITIS [None]
  - UNEVALUABLE EVENT [None]
  - VOMITING [None]
  - VULVOVAGINAL MYCOTIC INFECTION [None]
  - WHITE BLOOD CELL COUNT INCREASED [None]
  - WHITE BLOOD CELLS STOOL POSITIVE [None]
